FAERS Safety Report 16243495 (Version 6)
Quarter: 2019Q2

REPORT INFORMATION
  Report Type: Spontaneous
  Country: US (occurrence: US)
  Receive Date: 20190426
  Receipt Date: 20190531
  Transmission Date: 20190711
  Serious: Yes (Hospitalization, Other)
  Sender: FDA-Public Use
  Company Number: US-UNITED THERAPEUTICS-UNT-2019-007282

PATIENT
  Age: 67 Year
  Sex: Female
  Weight: 89.8 kg

DRUGS (4)
  1. ADEMPAS [Suspect]
     Active Substance: RIOCIGUAT
     Indication: PULMONARY ARTERIAL HYPERTENSION
     Dosage: UNK
     Route: 065
     Dates: end: 20190419
  2. ORENITRAM [Suspect]
     Active Substance: TREPROSTINIL
     Indication: PULMONARY ARTERIAL HYPERTENSION
     Dosage: 0.25 MG, BID
     Route: 048
     Dates: start: 20180419
  3. ORENITRAM [Suspect]
     Active Substance: TREPROSTINIL
     Indication: PULMONARY ARTERIAL HYPERTENSION
     Dosage: 4 MG, BID
     Route: 048
     Dates: start: 20180419, end: 20190419
  4. ORENITRAM [Suspect]
     Active Substance: TREPROSTINIL
     Indication: PULMONARY ARTERIAL HYPERTENSION

REACTIONS (9)
  - Abdominal pain upper [Recovered/Resolved]
  - Eating disorder [Unknown]
  - Unresponsive to stimuli [Recovered/Resolved]
  - Seizure [Not Recovered/Not Resolved]
  - Blood magnesium decreased [Unknown]
  - Muscle spasms [Unknown]
  - Delusion [Unknown]
  - Blood potassium decreased [Unknown]
  - Nystagmus [Unknown]

NARRATIVE: CASE EVENT DATE: 201904
